FAERS Safety Report 15322463 (Version 1)
Quarter: 2018Q3

REPORT INFORMATION
  Report Type: Spontaneous
  Country: IL (occurrence: IL)
  Receive Date: 20180827
  Receipt Date: 20180827
  Transmission Date: 20181010
  Serious: Yes (Hospitalization, Other)
  Sender: FDA-Public Use
  Company Number: IL-JNJFOC-20180822875

PATIENT
  Age: 81 Year
  Sex: Male
  Weight: 78 kg

DRUGS (1)
  1. XARELTO [Suspect]
     Active Substance: RIVAROXABAN
     Indication: ATRIAL FLUTTER
     Route: 048
     Dates: end: 201808

REACTIONS (8)
  - Microcytic anaemia [Unknown]
  - Blood albumin decreased [Unknown]
  - Treatment noncompliance [Unknown]
  - High density lipoprotein decreased [Unknown]
  - Embolic stroke [Recovered/Resolved]
  - Thrombocytopenia [Unknown]
  - Blood calcium decreased [Unknown]
  - Blood phosphorus decreased [Unknown]

NARRATIVE: CASE EVENT DATE: 201808
